FAERS Safety Report 15158010 (Version 1)
Quarter: 2018Q3

REPORT INFORMATION
  Report Type: Spontaneous
  Country: US (occurrence: US)
  Receive Date: 20180718
  Receipt Date: 20180718
  Transmission Date: 20181010
  Serious: No
  Sender: FDA-Public Use
  Company Number: US-PFIZER INC-2018287543

PATIENT
  Age: 48 Year
  Sex: Female

DRUGS (1)
  1. METHOTREXATE SODIUM. [Suspect]
     Active Substance: METHOTREXATE SODIUM
     Indication: RHEUMATOID ARTHRITIS
     Dosage: UNK
     Route: 058

REACTIONS (5)
  - Nausea [Not Recovered/Not Resolved]
  - Urinary tract infection [Unknown]
  - Drug intolerance [Unknown]
  - Gastrointestinal disorder [Not Recovered/Not Resolved]
  - Diarrhoea [Unknown]
